FAERS Safety Report 17400253 (Version 1)
Quarter: 2020Q1

REPORT INFORMATION
  Report Type: Spontaneous
  Country: US (occurrence: US)
  Receive Date: 20200211
  Receipt Date: 20200211
  Transmission Date: 20200409
  Serious: No
  Sender: FDA-Public Use
  Company Number: US-ALLERGAN-1935361US

PATIENT
  Age: 62 Year
  Sex: Male
  Weight: 80.74 kg

DRUGS (62)
  1. BIOTENE DRY MOUTH [Concomitant]
  2. GENVOYA [Concomitant]
     Active Substance: COBICISTAT\ELVITEGRAVIR\EMTRICITABINE\TENOFOVIR ALAFENAMIDE FUMARATE
  3. PAIN RELIEF NOS [Concomitant]
     Active Substance: CAMPHOR (SYNTHETIC)\LEVOMENTHOL\MENTHYL SALICYLATE OR CAMPHOR (SYNTHETIC)\MENTHOL\MENTHYL SALICYLATE OR MENTHOL\MENTHYL SALICYLATE
  4. STRIBILD [Concomitant]
     Active Substance: COBICISTAT\ELVITEGRAVIR\EMTRICITABINE\TENOFOVIR DISOPROXIL FUMARATE
  5. TRAZODONE [Concomitant]
     Active Substance: TRAZODONE HYDROCHLORIDE
  6. ALPRAZOLAM. [Concomitant]
     Active Substance: ALPRAZOLAM
     Dosage: 2 MG, BID
     Dates: start: 20190906
  7. ARICEPT [Concomitant]
     Active Substance: DONEPEZIL HYDROCHLORIDE
     Dosage: 10 MG, QD
     Route: 048
  8. CELECOXIB. [Concomitant]
     Active Substance: CELECOXIB
  9. DAILY-VITE [Concomitant]
  10. DIVALPROEX [Concomitant]
     Active Substance: DIVALPROEX SODIUM
  11. DULOXETINE. [Concomitant]
     Active Substance: DULOXETINE
     Dosage: 1 CAPSULE OF 30 MG WITH A 60 MG CAPSULE FOR A TOTAL DOSE OF 90 MG ONCE DAILY
  12. ALBUTEROL SULFATE. [Concomitant]
     Active Substance: ALBUTEROL SULFATE
  13. ARIPIPRAZOLE. [Concomitant]
     Active Substance: ARIPIPRAZOLE
     Dosage: UNK MG
     Dates: start: 20190506
  14. CLONAZEPAM. [Concomitant]
     Active Substance: CLONAZEPAM
     Dosage: 1 MG, BID
  15. DIPHENHYDRAMINE. [Concomitant]
     Active Substance: DIPHENHYDRAMINE
  16. DONEPEZIL. [Concomitant]
     Active Substance: DONEPEZIL
  17. EPINEPHRINE. [Concomitant]
     Active Substance: EPINEPHRINE
  18. KETOTIFEN [Concomitant]
     Active Substance: KETOTIFEN
  19. LACTULOSE. [Concomitant]
     Active Substance: LACTULOSE
  20. PREDNISONE. [Concomitant]
     Active Substance: PREDNISONE
  21. ZOLPIDEM [Concomitant]
     Active Substance: ZOLPIDEM TARTRATE
  22. AZITROMYCIN MYLAN [Concomitant]
     Dosage: UNK
     Dates: start: 20190202
  23. BANOPHEN [Concomitant]
     Active Substance: DIPHENHYDRAMINE HYDROCHLORIDE
     Dosage: UNK
     Dates: start: 20180910
  24. GAMMAPLEX [Concomitant]
     Active Substance: HUMAN IMMUNOGLOBULIN G
  25. LYRICA [Concomitant]
     Active Substance: PREGABALIN
  26. VALACYCLOVIR [Concomitant]
     Active Substance: VALACYCLOVIR HYDROCHLORIDE
  27. VITAMIN D3 [Concomitant]
     Active Substance: CHOLECALCIFEROL
  28. ZOLPIDEM [Concomitant]
     Active Substance: ZOLPIDEM TARTRATE
  29. AMITRIPTYLINE [Concomitant]
     Active Substance: AMITRIPTYLINE
     Dosage: 100 MG, QPM
     Dates: start: 20190712
  30. BIOTENE NOS [Concomitant]
     Active Substance: CETYLPYRIDINIUM CHLORIDE OR SODIUM FLUORIDE OR SODIUM MONOFLUOROPHOSPHATE OR GLUCOSE OXIDASE\LACTOFERRIN\LACTOPEROXIDASE BOVINE\LYSOZYME
  31. FLUTICASONE PROPIONATE. [Concomitant]
     Active Substance: FLUTICASONE PROPIONATE
  32. GEMFIBROZIL. [Concomitant]
     Active Substance: GEMFIBROZIL
  33. HORIZANT [Concomitant]
     Active Substance: GABAPENTIN ENACARBIL
     Dosage: 2 DF, QPM
  34. OXCARBAZEPINE. [Concomitant]
     Active Substance: OXCARBAZEPINE
  35. TAMSULOSIN [Concomitant]
     Active Substance: TAMSULOSIN
  36. ALPRAZOLAM. [Concomitant]
     Active Substance: ALPRAZOLAM
     Dosage: 1 MG, QD
     Dates: start: 20190926
  37. AMMONIUM LACTATE. [Concomitant]
     Active Substance: AMMONIUM LACTATE
     Dosage: UNK
     Dates: start: 20190501
  38. CLOBETASOL [Concomitant]
     Active Substance: CLOBETASOL
  39. COMPLERA [Concomitant]
     Active Substance: EMTRICITABINE\RILPIVIRINE HYDROCHLORIDE\TENOFOVIR DISOPROXIL FUMARATE
  40. FEXOFENADINE [Concomitant]
     Active Substance: FEXOFENADINE HYDROCHLORIDE
  41. LEVOTHYROXINE. [Concomitant]
     Active Substance: LEVOTHYROXINE
  42. LIDOCAINE VISCOUS [Concomitant]
     Active Substance: LIDOCAINE HYDROCHLORIDE
  43. LYRICA [Concomitant]
     Active Substance: PREGABALIN
  44. NAMZARIC [Suspect]
     Active Substance: DONEPEZIL HYDROCHLORIDE\MEMANTINE HYDROCHLORIDE
     Indication: DEMENTIA ALZHEIMER^S TYPE
     Dosage: 28MG/10M MG, QD
     Route: 048
     Dates: start: 201905, end: 201906
  45. BENZONATATE. [Concomitant]
     Active Substance: BENZONATATE
  46. CALCIPOTRIENE. [Concomitant]
     Active Substance: CALCIPOTRIENE
  47. CETRIZINE [Concomitant]
     Active Substance: CETIRIZINE HYDROCHLORIDE
  48. DIVALPROEX [Concomitant]
     Active Substance: DIVALPROEX SODIUM
  49. DOCUSATE SODIUM. [Concomitant]
     Active Substance: DOCUSATE SODIUM
  50. LANSOPRAZOLE. [Concomitant]
     Active Substance: LANSOPRAZOLE
     Dosage: 30 MG, QD
  51. NAPROXEN. [Concomitant]
     Active Substance: NAPROXEN
  52. VITAMIN B12 [Concomitant]
     Active Substance: CYANOCOBALAMIN
  53. NAMZARIC [Suspect]
     Active Substance: DONEPEZIL HYDROCHLORIDE\MEMANTINE HYDROCHLORIDE
     Dosage: 21 MG, QD
     Route: 048
  54. AMITRIPTYLINE [Concomitant]
     Active Substance: AMITRIPTYLINE
     Dosage: 25 MG, QPM
     Dates: start: 20190514
  55. DICLOFENAC [Concomitant]
     Active Substance: DICLOFENAC
     Route: 061
  56. GAMMAKED [Concomitant]
     Active Substance: HUMAN IMMUNOGLOBULIN G
  57. HORIZANT [Concomitant]
     Active Substance: GABAPENTIN ENACARBIL
     Dosage: 1 DF, QD
  58. OXCARBAZEPINE. [Concomitant]
     Active Substance: OXCARBAZEPINE
  59. PRAMIPEXOL [Concomitant]
     Active Substance: PRAMIPEXOLE
  60. QUETIAPINE. [Concomitant]
     Active Substance: QUETIAPINE
  61. VITAMIN B6 [Concomitant]
     Active Substance: PYRIDOXINE HYDROCHLORIDE
  62. VITAMIN C [Concomitant]
     Active Substance: ASCORBIC ACID

REACTIONS (3)
  - Memory impairment [Unknown]
  - Nightmare [Recovering/Resolving]
  - Pain [Recovering/Resolving]

NARRATIVE: CASE EVENT DATE: 201905
